FAERS Safety Report 7163973 (Version 3)
Quarter: 2013Q2

REPORT INFORMATION
  Report Type: Spontaneous
  Country: JP (occurrence: None)
  Receive Date: 20091014
  Receipt Date: 20130415
  Transmission Date: 20140414
  Serious: Yes (Death)
  Sender: FDA-Public Use
  Company Number: THYM-1001234

PATIENT
  Age: 65 Year
  Sex: Male
  Weight: 50 kg

DRUGS (1)
  1. THYMOGLOBULIN [Suspect]
     Indication: ACUTE GRAFT VERSUS HOST DISEASE
     Dosage: 0.5 MG/KG, ONCE, INTRAVENOUS
     Route: 042
     Dates: start: 20090319, end: 20090319

REACTIONS (1)
  - GRAFT VERSUS HOST DISEASE [None]
